FAERS Safety Report 9798040 (Version 1)
Quarter: 2014Q1

REPORT INFORMATION
  Report Type: Spontaneous
  Country: US (occurrence: US)
  Receive Date: 20140106
  Receipt Date: 20140106
  Transmission Date: 20141002
  Serious: No
  Sender: FDA-Public Use
  Company Number: US-009507513-1312USA005505

PATIENT
  Age: 22 Year
  Sex: Female
  Weight: 53.97 kg

DRUGS (3)
  1. NUVARING [Suspect]
     Indication: CONTRACEPTION
     Dosage: UNK
     Route: 067
     Dates: start: 20131002
  2. PLAN B ONE STEP [Suspect]
     Indication: CONTRACEPTION
     Dosage: 1.5 MG, QD
     Route: 048
     Dates: start: 20131005, end: 20131005
  3. REMERON [Concomitant]
     Indication: ANXIETY
     Dosage: AS REQUIRED

REACTIONS (3)
  - Metrorrhagia [Recovered/Resolved]
  - Menstruation irregular [Not Recovered/Not Resolved]
  - Weight increased [Unknown]
